FAERS Safety Report 4409505-0 (Version None)
Quarter: 2004Q2

REPORT INFORMATION
  Report Type: 
  Country: None (occurrence: None)
  Receive Date: 20040618
  Receipt Date: 20040507
  Transmission Date: 20050107
  Serious: No
  Sender: FDA-Public Use
  Company Number: US-JNJFOC-20040501903

PATIENT
  Age: 28 Year
  Sex: Female
  Weight: 59.8748 kg

DRUGS (3)
  1. ORTHO EVRA [Suspect]
     Indication: CONTRACEPTION
     Dosage: 1 DOSE(S), 3 IN 4 WEEK, TRANSDERMAL
     Route: 062
     Dates: start: 20040421
  2. DIFLUCAN (FLUCONAZOLE) UNSPECIFIED [Concomitant]
  3. HYOSINE (HYOSCINE) UNSPECIFIED [Concomitant]

REACTIONS (3)
  - METRORRHAGIA [None]
  - MUSCLE CRAMP [None]
  - PAIN TRAUMA ACTIVATED [None]
